FAERS Safety Report 17540925 (Version 1)
Quarter: 2020Q1

REPORT INFORMATION
  Report Type: Report from Study
  Country: FR (occurrence: FR)
  Receive Date: 20200313
  Receipt Date: 20200313
  Transmission Date: 20200409
  Serious: Yes (Hospitalization, Other)
  Sender: FDA-Public Use
  Company Number: FR-BRISTOL-MYERS SQUIBB COMPANY-BMS-2020-018392

PATIENT
  Age: 12 Year
  Sex: Male

DRUGS (2)
  1. DASATINIB. [Suspect]
     Active Substance: DASATINIB
     Indication: BRAIN STEM GLIOMA
     Dosage: FIRST CYCLE
     Route: 065
     Dates: start: 20190905
  2. DASATINIB. [Suspect]
     Active Substance: DASATINIB
     Indication: PRODUCT USED FOR UNKNOWN INDICATION
     Dosage: 100 MILLIGRAM
     Route: 048
     Dates: start: 20200219, end: 20200226

REACTIONS (1)
  - Enterocolitis haemorrhagic [Recovered/Resolved]

NARRATIVE: CASE EVENT DATE: 20200224
